FAERS Safety Report 10637839 (Version 1)
Quarter: 2014Q4

REPORT INFORMATION
  Report Type: Spontaneous
  Country: CN (occurrence: CN)
  Receive Date: 20141208
  Receipt Date: 20141208
  Transmission Date: 20150529
  Serious: Yes (Life-Threatening, Other)
  Sender: FDA-Public Use
  Company Number: CN-MYLANLABS-2014M1013027

PATIENT

DRUGS (1)
  1. METHIMAZOLE. [Suspect]
     Active Substance: METHIMAZOLE
     Indication: BASEDOW^S DISEASE
     Dosage: 15 MG/DAY FOR 42 DAYS
     Route: 065

REACTIONS (4)
  - Plasmacytosis [Recovered/Resolved]
  - Agranulocytosis [Recovered/Resolved]
  - Pancytopenia [Recovered/Resolved]
  - Bone marrow failure [Recovered/Resolved]
